FAERS Safety Report 4376031-7 (Version None)
Quarter: 2004Q2

REPORT INFORMATION
  Report Type: 
  Country: None (occurrence: None)
  Receive Date: 20040609
  Receipt Date: 20040609
  Transmission Date: 20050107
  Serious: Yes (Hospitalization)
  Sender: FDA-Public Use
  Company Number: None

PATIENT
  Age: 84 Year
  Sex: Male

DRUGS (8)
  1. LANTUS [Suspect]
     Indication: DIABETES MELLITUS
     Dosage: 5 UNITS Q AM
  2. NPH INSULIN [Suspect]
     Indication: DIABETES MELLITUS
     Dosage: 40 UNITS WITH EACH TEN
  3. ASPIRIN [Concomitant]
  4. CEFAZOLIN [Concomitant]
  5. METOCLOPRAMIDE [Concomitant]
  6. METOPROLOL TARTRATE [Concomitant]
  7. RISPERIDONE [Concomitant]
  8. HEPARIN [Concomitant]

REACTIONS (5)
  - BLOOD GLUCOSE INCREASED [None]
  - CATHETER RELATED COMPLICATION [None]
  - COMA [None]
  - HYPOGLYCAEMIA [None]
  - LETHARGY [None]
